FAERS Safety Report 9341360 (Version 1)
Quarter: 2013Q2

REPORT INFORMATION
  Report Type: Spontaneous
  Country: US (occurrence: US)
  Receive Date: 20130611
  Receipt Date: 20130611
  Transmission Date: 20140414
  Serious: Yes (Other)
  Sender: FDA-Public Use
  Company Number: US-ROCHE-1233088

PATIENT
  Sex: Female

DRUGS (26)
  1. RITUXAN [Suspect]
     Indication: PRODUCT USED FOR UNKNOWN INDICATION
     Route: 065
  2. ACTEMRA [Suspect]
     Indication: PRODUCT USED FOR UNKNOWN INDICATION
     Route: 065
  3. PLAQUENIL [Suspect]
     Indication: PRODUCT USED FOR UNKNOWN INDICATION
     Route: 065
  4. ORENCIA [Suspect]
     Indication: PRODUCT USED FOR UNKNOWN INDICATION
     Route: 065
  5. SULFASALAZINE [Suspect]
     Indication: PRODUCT USED FOR UNKNOWN INDICATION
     Route: 065
  6. ENBREL [Suspect]
     Indication: RHEUMATOID ARTHRITIS
     Route: 065
  7. METHOTREXATE [Suspect]
     Indication: PRODUCT USED FOR UNKNOWN INDICATION
     Dosage: TAKE EIGHT TABLETS BY MOUTH
     Route: 048
  8. PREDNISONE [Concomitant]
     Route: 065
  9. PREDNISONE [Concomitant]
     Route: 065
  10. PRILOSEC [Concomitant]
     Route: 065
  11. HYDROXYCHLOROQUINE SULFATE [Concomitant]
     Route: 065
  12. CLOTRIMAZOLE [Concomitant]
  13. OXYCODONE HYDROCHLORIDE [Concomitant]
     Route: 065
  14. ESTRADIOL [Concomitant]
     Route: 065
  15. CHONDROITIN [Concomitant]
     Route: 065
  16. METOPROLOL TARTRATE [Concomitant]
     Route: 065
  17. BETAMETHASONE [Concomitant]
  18. VITAMIN D3 [Concomitant]
     Route: 065
  19. ACIDOPHILUS [Concomitant]
  20. FOLIC ACID [Concomitant]
     Route: 065
  21. LEUCOVORIN CALCIUM [Concomitant]
  22. CELEBREX [Concomitant]
  23. REMICADE [Concomitant]
  24. HUMIRA [Concomitant]
  25. ACETAMINOPHEN [Concomitant]
     Route: 065
  26. PECTIN [Concomitant]
     Route: 065

REACTIONS (17)
  - Diabetes mellitus [Unknown]
  - Oedema [Unknown]
  - Rash [Unknown]
  - Alopecia [Unknown]
  - Abdominal discomfort [Unknown]
  - Arthralgia [Unknown]
  - Musculoskeletal stiffness [Unknown]
  - Laceration [Unknown]
  - Joint swelling [Unknown]
  - Liver function test abnormal [Unknown]
  - Abdominal distension [Unknown]
  - Drug ineffective [Unknown]
  - Hypertension [Unknown]
  - Back pain [Unknown]
  - Skin fragility [Unknown]
  - Increased tendency to bruise [Unknown]
  - Weight decreased [Unknown]
